FAERS Safety Report 8300667-1 (Version None)
Quarter: 2012Q2

REPORT INFORMATION
  Report Type: 
  Country: None (occurrence: None)
  Receive Date: 20120420
  Receipt Date: 20120410
  Transmission Date: 20120825
  Serious: Yes (Hospitalization)
  Sender: FDA-Public Use
  Company Number: PHHY2012KR011611

PATIENT
  Sex: Female
  Weight: 42 kg

DRUGS (2)
  1. EXJADE [Suspect]
     Indication: APLASTIC ANAEMIA
  2. EXJADE [Suspect]
     Indication: IRON OVERLOAD
     Dosage: 1500 MG, UNK
     Route: 048
     Dates: start: 20080806

REACTIONS (4)
  - ARTHRITIS [None]
  - GLYCOSURIA [None]
  - PYREXIA [None]
  - ARTHRALGIA [None]
